FAERS Safety Report 7006640-8 (Version None)
Quarter: 2010Q3

REPORT INFORMATION
  Report Type: 
  Country: None (occurrence: None)
  Receive Date: 20100921
  Receipt Date: 20100921
  Transmission Date: 20110219
  Serious: No
  Sender: FDA-Public Use
  Company Number: None

PATIENT
  Age: 57 Year
  Sex: Female
  Weight: 74.8435 kg

DRUGS (2)
  1. BEPREVE [Suspect]
     Indication: DRY EYE
     Dosage: ONE DROP EACH EYE TWICE A DAY OTIC
     Dates: start: 20100916, end: 20100918
  2. BEPREVE [Suspect]
     Indication: EYE PRURITUS
     Dosage: ONE DROP EACH EYE TWICE A DAY OTIC
     Dates: start: 20100916, end: 20100918

REACTIONS (3)
  - DYSGEUSIA [None]
  - EYE PRURITUS [None]
  - LACRIMATION INCREASED [None]
